FAERS Safety Report 25021087 (Version 1)
Quarter: 2025Q1

REPORT INFORMATION
  Report Type: Report from Study
  Country: US (occurrence: US)
  Receive Date: 20250228
  Receipt Date: 20250228
  Transmission Date: 20250408
  Serious: Yes (Other)
  Sender: ABBVIE
  Company Number: US-ABBVIE-6146834

PATIENT
  Sex: Male

DRUGS (5)
  1. HUMIRA [Suspect]
     Active Substance: ADALIMUMAB
     Indication: Rheumatoid arthritis
     Route: 058
     Dates: start: 20190628, end: 20250113
  2. SULFASALAZINE [Concomitant]
     Active Substance: SULFASALAZINE
     Indication: Neoplasm malignant
     Dates: start: 2015
  3. PREDNISONE [Concomitant]
     Active Substance: PREDNISONE
     Indication: Neoplasm malignant
     Dates: start: 2015
  4. FOLIC ACID [Concomitant]
     Active Substance: FOLIC ACID
     Indication: Neoplasm malignant
     Dates: start: 2015
  5. METHOTREXATE [Concomitant]
     Active Substance: METHOTREXATE
     Indication: Neoplasm malignant
     Dates: start: 2015

REACTIONS (1)
  - Melanocytic naevus [Unknown]

NARRATIVE: CASE EVENT DATE: 20240101
